FAERS Safety Report 8530408-4 (Version None)
Quarter: 2012Q3

REPORT INFORMATION
  Report Type: 
  Country: None (occurrence: None)
  Receive Date: 20120723
  Receipt Date: 20120718
  Transmission Date: 20120928
  Serious: Yes (Other)
  Sender: FDA-Public Use
  Company Number: US-PFIZER INC-2012175962

PATIENT
  Sex: Female
  Weight: 50.8 kg

DRUGS (1)
  1. XALKORI [Suspect]
     Dosage: 250 MG, 2X/DAY
     Route: 048

REACTIONS (2)
  - FAECALOMA [None]
  - CONSTIPATION [None]
